FAERS Safety Report 9458678 (Version 2)
Quarter: 2013Q3

REPORT INFORMATION
  Report Type: Spontaneous
  Country: JP (occurrence: JP)
  Receive Date: 20130814
  Receipt Date: 20130913
  Transmission Date: 20140515
  Serious: No
  Sender: FDA-Public Use
  Company Number: JP-UCBSA-088927

PATIENT
  Age: 61 Year
  Sex: Male

DRUGS (1)
  1. XYZAL [Suspect]
     Indication: ECZEMA
     Route: 048
     Dates: start: 20130321, end: 20130624

REACTIONS (1)
  - Arrhythmia [Unknown]
